FAERS Safety Report 24167873 (Version 9)
Quarter: 2025Q3

REPORT INFORMATION
  Report Type: Report from Study
  Country: JP (occurrence: JP)
  Receive Date: 20240802
  Receipt Date: 20250722
  Transmission Date: 20251020
  Serious: Yes (Death, Life-Threatening, Hospitalization, Disabling, Other)
  Sender: GENMAB
  Company Number: JP-GENMAB-2024-02766

PATIENT
  Age: 59 Year
  Sex: Male
  Weight: 78 kg

DRUGS (9)
  1. EPKINLY [Suspect]
     Active Substance: EPCORITAMAB-BYSP
     Indication: Diffuse large B-cell lymphoma refractory
     Route: 058
     Dates: start: 20231220, end: 20231220
  2. EPKINLY [Suspect]
     Active Substance: EPCORITAMAB-BYSP
     Route: 058
     Dates: start: 20240105, end: 20240105
  3. EPKINLY [Suspect]
     Active Substance: EPCORITAMAB-BYSP
     Route: 058
     Dates: start: 20240112, end: 20240112
  4. EPKINLY [Suspect]
     Active Substance: EPCORITAMAB-BYSP
     Route: 058
     Dates: start: 20240123, end: 20240520
  5. PREDONINE [Suspect]
     Active Substance: PREDNISOLONE
     Indication: Enterocolitis
     Dates: start: 20240307, end: 2024
  6. PREDONINE [Suspect]
     Active Substance: PREDNISOLONE
     Dates: start: 2024, end: 2024
  7. PREDONINE [Suspect]
     Active Substance: PREDNISOLONE
     Dates: start: 2024, end: 2024
  8. PREDONINE [Suspect]
     Active Substance: PREDNISOLONE
     Dates: start: 2024, end: 2024
  9. CORTICOTROPIN [Concomitant]
     Active Substance: CORTICOTROPIN
     Indication: Prophylaxis
     Dates: start: 20231220, end: 20240130

REACTIONS (10)
  - Enterocolitis [Not Recovered/Not Resolved]
  - Haemorrhagic gastroenteritis [Recovered/Resolved with Sequelae]
  - Cytomegalovirus enterocolitis [Not Recovered/Not Resolved]
  - Cytokine release syndrome [Recovered/Resolved]
  - Intervertebral discitis [Recovering/Resolving]
  - Psoas abscess [Recovering/Resolving]
  - Systemic candida [Fatal]
  - Aspartate aminotransferase increased [Recovered/Resolved]
  - Alanine aminotransferase increased [Recovered/Resolved]
  - Pyrexia [Recovered/Resolved]

NARRATIVE: CASE EVENT DATE: 20231221
